FAERS Safety Report 4654551-5 (Version None)
Quarter: 2005Q2

REPORT INFORMATION
  Report Type: 
  Country: None (occurrence: None)
  Receive Date: 20050504
  Receipt Date: 20050504
  Transmission Date: 20051028
  Serious: No
  Sender: FDA-Public Use
  Company Number: None

PATIENT
  Sex: Male
  Weight: 7.45 kg

DRUGS (9)
  1. PACLITAXEL [Suspect]
     Dosage: 225 MG/M2 IV OVER 3 HOURS ON DAY 1 EVERY 21 DAYS X 2
     Route: 042
     Dates: start: 20050328
  2. CARBOPLATIN [Suspect]
     Dosage: AUC= 6 IV OVER 15-30 MIN ON DAY 1 EVERY 21 DAYS X 2
     Route: 042
  3. RADIATION THERAPY [Suspect]
     Dosage: 60GY OVER 6 WKS BEGINNING BETWEEN DAYS 43-60
  4. ADVAIR DISKUS 100/50 [Concomitant]
  5. COMBIVANT [Concomitant]
  6. DEXEMETHASONE [Concomitant]
  7. EMD [Concomitant]
  8. LASIX [Concomitant]
  9. LEXAPRO [Concomitant]

REACTIONS (1)
  - SEPTIC SHOCK [None]
